FAERS Safety Report 14584723 (Version 3)
Quarter: 2018Q1

REPORT INFORMATION
  Report Type: Report from Study
  Country: US (occurrence: US)
  Receive Date: 20180301
  Receipt Date: 20180315
  Transmission Date: 20180509
  Serious: Yes (Life-Threatening, Hospitalization)
  Sender: FDA-Public Use
  Company Number: US-ROCHE-2075190

PATIENT
  Age: 70 Year
  Sex: Female
  Weight: 97 kg

DRUGS (3)
  1. ATEZOLIZUMAB. [Suspect]
     Active Substance: ATEZOLIZUMAB
     Indication: MALIGNANT MELANOMA
     Dosage: DATE OF MOST RECENT DOSE OF ATEZOLIZUMAB (840 MG) PRIOR TO THE ADVERSE EVENT: 31/JAN/2018?DAYS 1 AND
     Route: 042
     Dates: start: 20180117
  2. COBIMETINIB. [Suspect]
     Active Substance: COBIMETINIB
     Indication: MALIGNANT MELANOMA
     Dosage: DATE OF MOST RECENT DOSE OF COBIMETINIB (60 MG) PRIOR TO THE SERIOUS ADVERSE EVENT: 06/FEB/2018
     Route: 048
     Dates: start: 20180117
  3. DILANTIN [Concomitant]
     Active Substance: PHENYTOIN

REACTIONS (1)
  - Wound infection [Recovered/Resolved]

NARRATIVE: CASE EVENT DATE: 20180212
